FAERS Safety Report 8518745-0 (Version None)
Quarter: 2012Q3

REPORT INFORMATION
  Report Type: 
  Country: None (occurrence: None)
  Receive Date: 20120718
  Receipt Date: 20120712
  Transmission Date: 20120928
  Serious: Yes (Other)
  Sender: FDA-Public Use
  Company Number: PHEH2012US013797

PATIENT
  Sex: Female

DRUGS (1)
  1. EXELON [Suspect]
     Dosage: 4.6 MG, QD
     Route: 062
     Dates: start: 20120602, end: 20120618

REACTIONS (2)
  - MEMORY IMPAIRMENT [None]
  - CONFUSIONAL STATE [None]
